FAERS Safety Report 23906550 (Version 1)
Quarter: 2024Q2

REPORT INFORMATION
  Report Type: Spontaneous
  Country: BR (occurrence: BR)
  Receive Date: 20240528
  Receipt Date: 20240528
  Transmission Date: 20240715
  Serious: Yes (Other)
  Sender: FDA-Public Use
  Company Number: BR-ABBVIE-5774495

PATIENT
  Age: 60 Year
  Sex: Female
  Weight: 70 kg

DRUGS (7)
  1. BOTOX [Suspect]
     Active Substance: ONABOTULINUMTOXINA
     Indication: Product used for unknown indication
     Dosage: TIME INTERVAL: AS NECESSARY
     Route: 065
  2. CLINDAMYCIN [Concomitant]
     Active Substance: CLINDAMYCIN
     Indication: Oedema
     Dates: start: 20240522
  3. ACYCLOVIR [Concomitant]
     Active Substance: ACYCLOVIR
     Indication: Product used for unknown indication
     Dates: start: 20240520
  4. PREDNISONE [Concomitant]
     Active Substance: PREDNISONE
     Indication: Product used for unknown indication
     Dates: start: 20240520
  5. CIPROFLOXACIN [Concomitant]
     Active Substance: CIPROFLOXACIN
     Indication: Product used for unknown indication
     Dates: start: 20240522
  6. HYALURONATE SODIUM\TRIBASIC CALCIUM PHOSPHATE [Suspect]
     Active Substance: HYALURONATE SODIUM\TRIBASIC CALCIUM PHOSPHATE
     Indication: Product used for unknown indication
     Route: 065
  7. HYALURONIC ACID\LIDOCAINE HYDROCHLORIDE [Suspect]
     Active Substance: HYALURONIC ACID\LIDOCAINE HYDROCHLORIDE
     Indication: Product used for unknown indication
     Dosage: 1 SYRINGE ON EACH SIDE OF THE CHIN
     Route: 065
     Dates: start: 20240514, end: 20240514

REACTIONS (2)
  - Face oedema [Not Recovered/Not Resolved]
  - Skin lesion [Not Recovered/Not Resolved]

NARRATIVE: CASE EVENT DATE: 20240501
